FAERS Safety Report 21596705 (Version 1)
Quarter: 2022Q4

REPORT INFORMATION
  Report Type: Spontaneous
  Country: US (occurrence: US)
  Receive Date: 20221115
  Receipt Date: 20221115
  Transmission Date: 20230113
  Serious: No
  Sender: FDA-Public Use
  Company Number: US-AMNEAL PHARMACEUTICALS-2022-AMRX-00445

PATIENT
  Sex: Female
  Weight: 61 kg

DRUGS (11)
  1. ISOTRETINOIN [Suspect]
     Active Substance: ISOTRETINOIN
     Indication: Scar
     Dosage: 40 MG ,1 CAPSULES, QD
     Route: 048
     Dates: start: 20211014, end: 20211220
  2. ISOTRETINOIN [Suspect]
     Active Substance: ISOTRETINOIN
     Indication: Acne
     Dosage: 30MG, 1 CAPSULES, BID
     Route: 048
     Dates: start: 20211220, end: 2022
  3. TRETINOIN [Concomitant]
     Active Substance: TRETINOIN
     Indication: Acne
     Dosage: UNK
     Route: 061
     Dates: start: 20210413
  4. TRETINOIN [Concomitant]
     Active Substance: TRETINOIN
     Dosage: UNK UNK, BEDTIME, EVERY OTHER NIGHT FOR ACNE
     Route: 061
     Dates: start: 2022
  5. DAPSONE [Concomitant]
     Active Substance: DAPSONE
     Indication: Acne
     Dosage: UNK
     Route: 065
  6. SUNSCREEN [Concomitant]
     Active Substance: HOMOSALATE\OCTINOXATE\OCTISALATE\OXYBENZONE\TITANIUM DIOXIDE
     Indication: Acne
     Dosage: UNK
     Route: 065
  7. VITAMIN A, PLAIN [Concomitant]
     Indication: Acne
     Dosage: HIGH DOSE
     Route: 065
     Dates: start: 2021
  8. SPIRONOLACTONE [Concomitant]
     Active Substance: SPIRONOLACTONE
     Indication: Product used for unknown indication
     Dosage: UNK
     Route: 048
  9. PIMECROLIMUS [Concomitant]
     Active Substance: PIMECROLIMUS
     Indication: Eczema
     Dosage: UNK, BID
     Route: 061
     Dates: start: 2021
  10. TRIAMCINOLONE ACETONIDE [Concomitant]
     Active Substance: TRIAMCINOLONE ACETONIDE
     Indication: Eczema
     Dosage: APPLY BID FOR BID FOR 2 WEEKS THEN STOP
     Route: 061
  11. TETRACYCLINE [Concomitant]
     Active Substance: TETRACYCLINE
     Indication: Product used for unknown indication
     Dosage: UNK
     Route: 048

REACTIONS (12)
  - Pain [Unknown]
  - Dermatitis [Unknown]
  - Mood altered [Recovering/Resolving]
  - Anxiety [Unknown]
  - Eczema [Unknown]
  - Xerosis [Unknown]
  - Headache [Unknown]
  - Myalgia [Unknown]
  - Arthralgia [Not Recovered/Not Resolved]
  - Somnolence [Unknown]
  - Depression [Unknown]
  - Cheilitis [Unknown]

NARRATIVE: CASE EVENT DATE: 20210101
